FAERS Safety Report 4984290-2 (Version None)
Quarter: 2006Q2

REPORT INFORMATION
  Report Type: 
  Country: None (occurrence: None)
  Receive Date: 20060427
  Receipt Date: 20060419
  Transmission Date: 20061013
  Serious: Yes (Other)
  Sender: FDA-Public Use
  Company Number: PHBS2006BR05852

PATIENT
  Sex: Female

DRUGS (2)
  1. ELIDEL [Suspect]
     Indication: VITILIGO
     Dosage: UNK, QHS
     Route: 061
  2. PRELONE [Concomitant]
     Dosage: UNK, QD
     Route: 048

REACTIONS (4)
  - DIZZINESS [None]
  - HEADACHE [None]
  - MALAISE [None]
  - VISION BLURRED [None]
